FAERS Safety Report 12840448 (Version 1)
Quarter: 2016Q4

REPORT INFORMATION
  Report Type: Spontaneous
  Country: US (occurrence: US)
  Receive Date: 20161012
  Receipt Date: 20161012
  Transmission Date: 20170207
  Serious: No
  Sender: FDA-Public Use
  Company Number: US-SHIRE-US201610468

PATIENT
  Age: 73 Year
  Sex: Female

DRUGS (7)
  1. LORAZEPAM. [Concomitant]
     Active Substance: LORAZEPAM
     Indication: VERTIGO CNS ORIGIN
     Dosage: 1 MG, 4X/DAY:QID
     Route: 065
  2. XIIDRA [Suspect]
     Active Substance: LIFITEGRAST
     Indication: DRY EYE
     Dosage: 1 GTT (BOTH EYES), 2X/DAY:BID
     Route: 047
     Dates: start: 20160803, end: 20160806
  3. CELLUVISC OCULAR [Concomitant]
     Indication: PRODUCT USED FOR UNKNOWN INDICATION
     Dosage: APPLIES TO EACH EYE EVERY 20 MINUTES, OTHER
     Route: 047
  4. REFRESH LIQUIGEL [Concomitant]
     Active Substance: CARBOXYMETHYLCELLULOSE SODIUM
     Indication: PRODUCT USED FOR UNKNOWN INDICATION
     Dosage: UNK, OTHER (APPLIES ONE DROP TO EACH EYE AFTER APPLYING CELLUVISC)
     Route: 047
  5. CARAFATE [Concomitant]
     Active Substance: SUCRALFATE
     Indication: GASTROOESOPHAGEAL REFLUX DISEASE
     Dosage: 1 G, 4X/DAY:QID
     Route: 065
  6. ALREX                              /01388302/ [Concomitant]
     Indication: INFLAMMATION
     Dosage: 4 DROPS IN LEFT EYE AND 2 DROPS IN RIGHT EYE, OTHER
     Route: 047
  7. SYNTHROID [Concomitant]
     Active Substance: LEVOTHYROXINE SODIUM
     Indication: HYPOTHYROIDISM
     Dosage: 0.88 ?G, UNKNOWN
     Route: 065

REACTIONS (2)
  - Eye pain [Recovered/Resolved]
  - Headache [Recovered/Resolved]

NARRATIVE: CASE EVENT DATE: 20160804
